FAERS Safety Report 15436412 (Version 1)
Quarter: 2018Q3

REPORT INFORMATION
  Report Type: Spontaneous
  Country: BR (occurrence: BR)
  Receive Date: 20180927
  Receipt Date: 20180927
  Transmission Date: 20181010
  Serious: Yes (Hospitalization, Other)
  Sender: FDA-Public Use
  Company Number: BR-PFIZER INC-2018341536

PATIENT
  Age: 7 Month
  Sex: Female
  Weight: 5 kg

DRUGS (7)
  1. PARACETAMOL [Concomitant]
     Active Substance: ACETAMINOPHEN
     Indication: PYREXIA
  2. LINEZOLID. [Suspect]
     Active Substance: LINEZOLID
     Indication: MENINGITIS BACTERIAL
     Dosage: 50 MG EVERY 8 HOURS (30 MG/KG/DAY)
     Route: 042
     Dates: start: 20180730, end: 20180812
  3. METAMIZOLE [Concomitant]
     Active Substance: METAMIZOLE
     Indication: PYREXIA
  4. PARACETAMOL [Concomitant]
     Active Substance: ACETAMINOPHEN
     Indication: PAIN
     Dosage: 5 DROPS, EVERY 6 HOURS
     Route: 048
  5. BROMOPRIDE [Concomitant]
     Active Substance: BROMOPRIDE
     Indication: NAUSEA
     Dosage: 0.2 ML, EVERY 6 HOURS
     Route: 042
  6. BROMOPRIDE [Concomitant]
     Active Substance: BROMOPRIDE
     Indication: VOMITING
  7. METAMIZOLE [Concomitant]
     Active Substance: METAMIZOLE
     Indication: PAIN
     Dosage: 0.2 ML, EVERY 6 HOURS
     Route: 042

REACTIONS (8)
  - Leukopenia [Recovered/Resolved]
  - Coagulopathy [Unknown]
  - Candida infection [Recovered/Resolved]
  - Transaminases increased [Recovered/Resolved]
  - Rash [Unknown]
  - Serum ferritin increased [Unknown]
  - Blood lactate dehydrogenase increased [Unknown]
  - Thrombocytopenia [Recovered/Resolved]

NARRATIVE: CASE EVENT DATE: 2018
